FAERS Safety Report 5289389-1 (Version None)
Quarter: 2007Q2

REPORT INFORMATION
  Report Type: 
  Country: None (occurrence: None)
  Receive Date: 20070406
  Receipt Date: 20070326
  Transmission Date: 20071010
  Serious: Yes (Disabling)
  Sender: FDA-Public Use
  Company Number: PHRM2007FR01131

PATIENT
  Age: 60 Year
  Sex: Female

DRUGS (4)
  1. ZOMETA [Suspect]
     Indication: METASTASES TO BONE
     Dosage: 4 MG EVERY THREE WEEKS
     Route: 042
     Dates: start: 20050711, end: 20051120
  2. ZOMETA [Suspect]
     Dosage: 4 MG EVERY THREE WEEKS
     Route: 042
     Dates: start: 20060324, end: 20061220
  3. ETOPOSIDE [Concomitant]
     Indication: BONE SARCOMA
  4. CARBOPLATIN [Concomitant]
     Indication: BONE SARCOMA

REACTIONS (4)
  - OSTEONECROSIS [None]
  - PAIN IN JAW [None]
  - POOR PERSONAL HYGIENE [None]
  - TOOTH EXTRACTION [None]
